FAERS Safety Report 7084636-8 (Version None)
Quarter: 2010Q4

REPORT INFORMATION
  Report Type: 
  Country: None (occurrence: None)
  Receive Date: 20101104
  Receipt Date: 20101027
  Transmission Date: 20110411
  Serious: Yes (Other)
  Sender: FDA-Public Use
  Company Number: PHHY2009BE54433

PATIENT
  Sex: Male

DRUGS (2)
  1. NEORAL [Suspect]
     Indication: HEART TRANSPLANT
  2. IMURAN [Concomitant]

REACTIONS (2)
  - CARCINOID TUMOUR [None]
  - METASTASES TO SKIN [None]
